FAERS Safety Report 4280667-1 (Version None)
Quarter: 2004Q1

REPORT INFORMATION
  Report Type: 
  Country: None (occurrence: None)
  Receive Date: 20040127
  Receipt Date: 20040114
  Transmission Date: 20041129
  Serious: Yes (Hospitalization)
  Sender: FDA-Public Use
  Company Number: 04P-056-0247223-00

PATIENT
  Age: 69 Year
  Sex: Male

DRUGS (5)
  1. FENOFIBRATE [Suspect]
     Indication: HYPERCHOLESTEROLAEMIA
     Dosage: 200 MG, 1 IN 1 D, ORAL
     Route: 048
     Dates: start: 20020101
  2. SPAGLUMIC ACID [Concomitant]
  3. INDOMETHACIN [Concomitant]
  4. LATANOPROST [Concomitant]
  5. CLONAZEPAM [Concomitant]

REACTIONS (4)
  - BLOOD CALCIUM INCREASED [None]
  - BLOOD CREATININE INCREASED [None]
  - PRURITUS GENERALISED [None]
  - RENAL DISORDER [None]
